FAERS Safety Report 6756532-4 (Version None)
Quarter: 2010Q2

REPORT INFORMATION
  Report Type: 
  Country: None (occurrence: None)
  Receive Date: 20100604
  Receipt Date: 20100527
  Transmission Date: 20101027
  Serious: Yes (Life-Threatening, Hospitalization)
  Sender: FDA-Public Use
  Company Number: B0658968A

PATIENT
  Age: 70 Year
  Sex: Male

DRUGS (5)
  1. VENTOLIN [Suspect]
     Indication: INFECTIVE EXACERBATION OF CHRONIC OBSTRUCTIVE AIRWAYS DISEASE
     Route: 055
     Dates: start: 20100506, end: 20100506
  2. MOXIFLOXACIN HCL [Suspect]
     Indication: INFECTIVE EXACERBATION OF CHRONIC OBSTRUCTIVE AIRWAYS DISEASE
     Route: 048
     Dates: start: 20100506, end: 20100506
  3. URBASON [Suspect]
     Indication: INFECTIVE EXACERBATION OF CHRONIC OBSTRUCTIVE AIRWAYS DISEASE
     Route: 030
     Dates: start: 20100506, end: 20100506
  4. SERETIDE [Concomitant]
     Route: 055
  5. SPIRIVA [Concomitant]
     Route: 055

REACTIONS (1)
  - CARDIO-RESPIRATORY ARREST [None]
